FAERS Safety Report 5726722-8 (Version None)
Quarter: 2008Q2

REPORT INFORMATION
  Report Type: 
  Country: None (occurrence: None)
  Receive Date: 20080502
  Receipt Date: 20080428
  Transmission Date: 20081010
  Serious: Yes (Death)
  Sender: FDA-Public Use
  Company Number: TH-ASTRAZENECA-2008AP03183

PATIENT
  Age: 33 Year
  Sex: Male

DRUGS (1)
  1. NEXIUM [Suspect]
     Indication: ABDOMINAL PAIN
     Route: 042
     Dates: start: 20060101, end: 20060101

REACTIONS (1)
  - CARDIAC ARREST [None]
